FAERS Safety Report 9123912 (Version 1)
Quarter: 2013Q1

REPORT INFORMATION
  Report Type: Spontaneous
  Country: US (occurrence: US)
  Receive Date: 20130227
  Receipt Date: 20130227
  Transmission Date: 20140127
  Serious: Yes (Other)
  Sender: FDA-Public Use
  Company Number: CHPA2013US003436

PATIENT
  Age: 71 Year
  Sex: Female

DRUGS (4)
  1. MAALOX ANTACID/ANTIGAS RS LIQ COOL MINT [Suspect]
     Indication: OESOPHAGEAL DISORDER
     Dosage: 3 TSP, QD
     Route: 048
  2. MAALOX ANTACID/ANTIGAS RS LIQ COOL MINT [Suspect]
     Indication: GASTRIC DISORDER
     Dosage: 6 TSP, UNK
     Route: 048
  3. MAALOX ANTACID/ANTIGAS RS LIQ COOL MINT [Suspect]
     Indication: PAIN
  4. MYLANTA                                 /USA/ [Concomitant]
     Dosage: UNK, UNK

REACTIONS (7)
  - Peptic ulcer [Recovered/Resolved]
  - Eye disorder [Not Recovered/Not Resolved]
  - Gastritis [Unknown]
  - Dyspepsia [Not Recovered/Not Resolved]
  - Therapeutic response unexpected [Unknown]
  - Off label use [Unknown]
  - Incorrect dose administered [Unknown]
